FAERS Safety Report 8301077-3 (Version None)
Quarter: 2012Q2

REPORT INFORMATION
  Report Type: 
  Country: None (occurrence: None)
  Receive Date: 20120420
  Receipt Date: 20120416
  Transmission Date: 20120825
  Serious: Yes (Life-Threatening)
  Sender: FDA-Public Use
  Company Number: CN-ASTRAZENECA-2012SE23755

PATIENT
  Age: 20 Year
  Sex: Male
  Weight: 85 kg

DRUGS (8)
  1. PROPOFOL [Suspect]
     Route: 042
  2. EPINEPHRINE [Concomitant]
     Route: 042
  3. LIDOCAINE [Concomitant]
     Indication: ALLERGY TEST
     Route: 058
  4. DEXAMETHASONE [Concomitant]
     Indication: PREMEDICATION
     Route: 042
  5. PROPOFOL [Suspect]
     Indication: ANAESTHESIA PROCEDURE
     Route: 042
  6. SODIUM CHLORIDE [Concomitant]
  7. FENTANYL [Concomitant]
     Indication: ANAESTHESIA PROCEDURE
     Route: 042
  8. AZTREONAM [Concomitant]

REACTIONS (1)
  - ANAPHYLACTIC SHOCK [None]
